FAERS Safety Report 12268892 (Version 2)
Quarter: 2016Q2

REPORT INFORMATION
  Report Type: Spontaneous
  Country: US (occurrence: US)
  Receive Date: 20160414
  Receipt Date: 20160415
  Transmission Date: 20160815
  Serious: Yes (Other)
  Sender: FDA-Public Use
  Company Number: US-ASTRAZENECA-2016SE38028

PATIENT
  Age: 20169 Day
  Sex: Female
  Weight: 152 kg

DRUGS (3)
  1. SYMBICORT [Suspect]
     Active Substance: BUDESONIDE\FORMOTEROL FUMARATE DIHYDRATE
     Indication: BRONCHITIS
     Dosage: 80/ 4.5 MCG, ONE PUFF THREE TIMES DAILY
     Route: 055
     Dates: start: 20160405
  2. SYMBICORT [Suspect]
     Active Substance: BUDESONIDE\FORMOTEROL FUMARATE DIHYDRATE
     Indication: BRONCHITIS
     Dosage: 80/ 4.5 MCG, ONE PUFF
     Route: 055
     Dates: start: 20160406
  3. SYMBICORT [Suspect]
     Active Substance: BUDESONIDE\FORMOTEROL FUMARATE DIHYDRATE
     Indication: BRONCHITIS
     Dosage: 80/ 4.5 MCG, ONE PUFF
     Route: 055
     Dates: start: 20160404

REACTIONS (5)
  - Seizure [Unknown]
  - Feeling abnormal [Unknown]
  - Memory impairment [Unknown]
  - Off label use [Unknown]
  - Dysphonia [Not Recovered/Not Resolved]

NARRATIVE: CASE EVENT DATE: 20160404
